FAERS Safety Report 11008041 (Version 1)
Quarter: 2015Q2

REPORT INFORMATION
  Report Type: Report from Study
  Country: ES (occurrence: ES)
  Receive Date: 20150410
  Receipt Date: 20150410
  Transmission Date: 20150821
  Serious: Yes (Other)
  Sender: FDA-Public Use
  Company Number: ES-ROCHE-1560933

PATIENT

DRUGS (3)
  1. LEFLUNOMIDE. [Suspect]
     Active Substance: LEFLUNOMIDE
     Indication: RHEUMATOID ARTHRITIS
     Dosage: 10-20 MG/DAY
     Route: 048
  2. TOCILIZUMAB [Suspect]
     Active Substance: TOCILIZUMAB
     Indication: RHEUMATOID ARTHRITIS
     Dosage: AND COULD BE ADAPTED ACCORDING TO EULAR AND LOCAL RECOMMENDATIONS
     Route: 042
  3. METHOTREXATE [Suspect]
     Active Substance: METHOTREXATE
     Indication: RHEUMATOID ARTHRITIS
     Dosage: 7.5-25 MG
     Route: 065

REACTIONS (11)
  - Psoriasis [Unknown]
  - Arthritis bacterial [Unknown]
  - Pelvic inflammatory disease [Unknown]
  - Lipids increased [Unknown]
  - Endocarditis [Unknown]
  - Diverticulitis [Unknown]
  - Infection [Unknown]
  - Infusion related reaction [Unknown]
  - Neutropenia [Unknown]
  - Salpingitis [Unknown]
  - Hepatic enzyme increased [Unknown]
